FAERS Safety Report 17297292 (Version 1)
Quarter: 2020Q1

REPORT INFORMATION
  Report Type: Spontaneous
  Country: IT (occurrence: IT)
  Receive Date: 20200122
  Receipt Date: 20200122
  Transmission Date: 20200409
  Serious: Yes (Hospitalization)
  Sender: FDA-Public Use
  Company Number: IT-TEVA-2020-IT-1171162

PATIENT
  Age: 7 Decade
  Sex: Female

DRUGS (3)
  1. CARBOPLATINUM [Suspect]
     Active Substance: CARBOPLATIN
     Indication: OVARIAN CANCER
     Dosage: 5 AUC, SIX CYCLES
     Route: 065
     Dates: start: 201309, end: 201402
  2. BEVACIZUMAB. [Suspect]
     Active Substance: BEVACIZUMAB
     Indication: OVARIAN CANCER
     Dosage: INITIALLY RECEIVED SIX CYCLES AND THEN RECEIVED MAINTENANCE THERAPY FOR 16 COURSES
     Route: 065
     Dates: start: 201310, end: 201502
  3. PACLITAXEL. [Suspect]
     Active Substance: PACLITAXEL
     Indication: OVARIAN CANCER
     Dosage: SIX CYCLES
     Route: 065
     Dates: start: 201310, end: 201402

REACTIONS (2)
  - Rectal haemorrhage [Recovering/Resolving]
  - Arterioenteric fistula [Recovering/Resolving]

NARRATIVE: CASE EVENT DATE: 201803
